FAERS Safety Report 12955256 (Version 1)
Quarter: 2016Q4

REPORT INFORMATION
  Report Type: Report from Study
  Country: JP (occurrence: JP)
  Receive Date: 20161118
  Receipt Date: 20161118
  Transmission Date: 20170207
  Serious: Yes (Hospitalization, Other)
  Sender: FDA-Public Use
  Company Number: JP-009507513-1611JPN006295

PATIENT
  Age: 46 Year
  Sex: Male

DRUGS (17)
  1. ISENTRESS [Suspect]
     Active Substance: RALTEGRAVIR POTASSIUM
     Indication: ACQUIRED IMMUNODEFICIENCY SYNDROME
     Dosage: 800 MG, QD
     Route: 048
     Dates: start: 20090120, end: 20160202
  2. INTELENCE [Concomitant]
     Active Substance: ETRAVIRINE
     Indication: ACQUIRED IMMUNODEFICIENCY SYNDROME
     Dosage: 400 MG, QD
     Route: 048
     Dates: start: 20100515, end: 20160202
  3. DEPAS [Concomitant]
     Active Substance: ETIZOLAM
     Indication: DEPRESSION
     Dosage: 1 MG ONCE, AS NEEDED, FORMULATION: POR
     Route: 048
     Dates: start: 20151110
  4. LEXOTAN [Concomitant]
     Active Substance: BROMAZEPAM
     Dosage: 5 MG, TID
     Route: 048
     Dates: start: 20150421, end: 20160202
  5. WASSER-V GRANULES [Concomitant]
     Indication: MALAISE
     Dosage: 1 G, QD, FORMULATION: POR
     Route: 048
     Dates: start: 20150407, end: 20160202
  6. LOXONIN [Concomitant]
     Active Substance: LOXOPROFEN SODIUM
     Indication: ANTIPYRESIS
     Dosage: 60 MG ONCE/AS NEEDED
     Route: 065
     Dates: start: 20150421
  7. TRUVADA [Concomitant]
     Active Substance: EMTRICITABINE\TENOFOVIR DISOPROXIL FUMARATE
     Indication: ACQUIRED IMMUNODEFICIENCY SYNDROME
     Dosage: 1 TABLET, QD
     Route: 048
     Dates: start: 20090120, end: 20160202
  8. LENDORMIN D [Concomitant]
     Active Substance: BROTIZOLAM
     Indication: DEPRESSION
     Dosage: 0.25 MG, QD, FORMULATION: POR
     Route: 048
     Dates: end: 20160202
  9. CEFCAPENE PIVOXIL HYDROCHLORIDE [Concomitant]
     Active Substance: CEFCAPENE PIVOXIL HYDROCHLORIDE
     Indication: PYREXIA
     Dosage: 100 MG, TID, FORMULATION: POR
     Route: 048
     Dates: start: 20151221, end: 20151228
  10. MYSLEE [Concomitant]
     Active Substance: ZOLPIDEM TARTRATE
     Indication: DEPRESSION
     Dosage: 10 MG, QD, FORMULATION: POR
     Route: 048
     Dates: end: 20160331
  11. URSO [Concomitant]
     Active Substance: URSODIOL
     Indication: HEPATIC FUNCTION ABNORMAL
     Dosage: 200 MG, BID, FORMULATION: POR
     Route: 048
     Dates: start: 20150421, end: 20160126
  12. LEXOTAN [Concomitant]
     Active Substance: BROMAZEPAM
     Indication: PANIC DISORDER
     Dosage: 2 MG, TID, FORMULATION: POR
     Route: 048
     Dates: start: 20150421, end: 20151215
  13. URSO [Concomitant]
     Active Substance: URSODIOL
     Dosage: UNK, FORMULATION: POR
     Route: 048
     Dates: start: 2016
  14. SOLACET F [Concomitant]
     Indication: FLUID REPLACEMENT
     Dosage: 500 ML, QD
     Route: 051
     Dates: start: 20151210, end: 20151211
  15. ISENTRESS [Suspect]
     Active Substance: RALTEGRAVIR POTASSIUM
     Dosage: 400 MG, BID
     Route: 048
     Dates: start: 20160307
  16. HOCHU-EKKI-TO [Concomitant]
     Active Substance: UNSPECIFIED INGREDIENT
     Indication: MALAISE
     Dosage: 2.5 G, TID, FORMULATION: POR
     Route: 048
     Dates: start: 20150407, end: 20160202
  17. CEFCAPENE PIVOXIL HYDROCHLORIDE [Concomitant]
     Active Substance: CEFCAPENE PIVOXIL HYDROCHLORIDE
     Indication: DEPRESSION
     Dosage: 100 MG, TID, FORMULATION: POR
     Route: 048
     Dates: start: 20151208, end: 20151210

REACTIONS (6)
  - Pancreatitis [Not Recovered/Not Resolved]
  - Pyrexia [Recovered/Resolved]
  - Antithrombin III decreased [Recovered/Resolved]
  - Pneumonia [Recovered/Resolved]
  - Hepatic function abnormal [Not Recovered/Not Resolved]
  - Meningitis [Not Recovered/Not Resolved]

NARRATIVE: CASE EVENT DATE: 20151210
